FAERS Safety Report 6069369-9 (Version None)
Quarter: 2009Q1

REPORT INFORMATION
  Report Type: 
  Country: None (occurrence: None)
  Receive Date: 20090206
  Receipt Date: 20090203
  Transmission Date: 20090719
  Serious: Yes (Hospitalization, Other)
  Sender: FDA-Public Use
  Company Number: US-RB-009134-09

PATIENT

DRUGS (1)
  1. SUBUTEX [Suspect]
     Route: 064
     Dates: end: 20080101

REACTIONS (2)
  - DRUG EXPOSURE DURING PREGNANCY [None]
  - IRRITABILITY [None]
